FAERS Safety Report 23944924 (Version 1)
Quarter: 2024Q2

REPORT INFORMATION
  Report Type: Other
  Country: FR (occurrence: FR)
  Receive Date: 20240606
  Receipt Date: 20240606
  Transmission Date: 20240716
  Serious: Yes (Other)
  Sender: FDA-Public Use
  Company Number: None

PATIENT

DRUGS (3)
  1. ACETAMINOPHEN [Suspect]
     Active Substance: ACETAMINOPHEN
     Indication: Influenza like illness
     Dosage: 3 GRAM, QD
     Route: 048
     Dates: start: 20240115, end: 20240125
  2. OXOMEMAZINE HYDROCHLORIDE [Suspect]
     Active Substance: OXOMEMAZINE HYDROCHLORIDE
     Indication: Influenza like illness
     Dosage: 40 MILLILITER, QD
     Route: 048
     Dates: start: 20240115, end: 20240120
  3. BETAMETHASONE VALERATE [Concomitant]
     Active Substance: BETAMETHASONE VALERATE
     Indication: Product used for unknown indication
     Dosage: UNK
     Route: 065

REACTIONS (2)
  - Eosinophilia [Recovered/Resolved]
  - Rash maculo-papular [Recovered/Resolved]

NARRATIVE: CASE EVENT DATE: 20240120
